FAERS Safety Report 6176473-3 (Version None)
Quarter: 2009Q2

REPORT INFORMATION
  Report Type: 
  Country: None (occurrence: None)
  Receive Date: 20090501
  Receipt Date: 20090422
  Transmission Date: 20091009
  Serious: Yes (Other)
  Sender: FDA-Public Use
  Company Number: PHHY2009BR15488

PATIENT
  Age: 86 Year
  Sex: Female

DRUGS (4)
  1. EXELON [Suspect]
     Indication: DEMENTIA ALZHEIMER'S TYPE
     Dosage: 18MG/10CM2
     Route: 062
     Dates: start: 20080401
  2. MEMANTINE HCL [Concomitant]
     Indication: DEMENTIA ALZHEIMER'S TYPE
     Dosage: 10 MG, QHS
     Route: 048
  3. CAPTOPRIL [Concomitant]
     Indication: HYPERTENSION
     Dosage: 12.5 MG, QD
     Route: 048
  4. LEXOTAN [Concomitant]
     Indication: DEMENTIA ALZHEIMER'S TYPE
     Dosage: 2 TABLET/DAY
     Route: 048

REACTIONS (4)
  - ABNORMAL BEHAVIOUR [None]
  - DEPRESSED MOOD [None]
  - MEMORY IMPAIRMENT [None]
  - REPETITIVE SPEECH [None]
